FAERS Safety Report 9374960 (Version 1)
Quarter: 2013Q2

REPORT INFORMATION
  Report Type: Spontaneous
  Country: JP (occurrence: JP)
  Receive Date: 20130628
  Receipt Date: 20130628
  Transmission Date: 20140414
  Serious: Yes (Other)
  Sender: FDA-Public Use
  Company Number: JP-SUCAMPO PHARMA AMERICAS, INC-SPI201300429

PATIENT
  Age: 73 Year
  Sex: Male
  Weight: 62.9 kg

DRUGS (7)
  1. AMITIZA [Suspect]
     Indication: CONSTIPATION
     Dosage: 24 MCG, BID
     Route: 048
     Dates: start: 20121211, end: 20130604
  2. BIOFERMIN [Concomitant]
     Indication: CONSTIPATION
     Dosage: 1.0 G, TID
     Route: 048
     Dates: start: 20120328
  3. NICHIMALON [Concomitant]
     Indication: CONSTIPATION
     Dosage: 100 MG, TID
     Route: 048
     Dates: start: 20120328
  4. TRIAZOLAM [Concomitant]
     Indication: INSOMNIA
     Dosage: 0.25 MG, BID
     Route: 048
     Dates: start: 20121016
  5. DIAZEPAM [Concomitant]
     Indication: INSOMNIA
     Dosage: 2 MG, QD
     Route: 048
     Dates: start: 20130501
  6. PURSENNID [Concomitant]
     Indication: CONSTIPATION
     Dosage: 12 MG, BID
     Route: 048
     Dates: start: 20130129
  7. MAGNESIUM OXIDE [Concomitant]
     Indication: CONSTIPATION
     Dosage: 330 MG, TID
     Route: 048
     Dates: start: 20130604

REACTIONS (3)
  - Syncope [Recovered/Resolved]
  - Hypotension [None]
  - Lung neoplasm malignant [Not Recovered/Not Resolved]
